FAERS Safety Report 16251889 (Version 1)
Quarter: 2019Q2

REPORT INFORMATION
  Report Type: Spontaneous
  Country: AU (occurrence: AU)
  Receive Date: 20190429
  Receipt Date: 20190429
  Transmission Date: 20190711
  Serious: Yes (Other)
  Sender: FDA-Public Use
  Company Number: AU-NAPPMUNDI-GBR-2019-0066235

PATIENT
  Age: 40 Year
  Sex: Male

DRUGS (6)
  1. ENDONE [Interacting]
     Active Substance: OXYCODONE HYDROCHLORIDE
     Indication: PAIN
     Dosage: UNK
     Route: 065
     Dates: start: 2016
  2. APIXABAN [Concomitant]
     Active Substance: APIXABAN
  3. SOMAC [Concomitant]
     Active Substance: PANTOPRAZOLE SODIUM
  4. OXYCONTIN [Suspect]
     Active Substance: OXYCODONE HYDROCHLORIDE
     Indication: PAIN
     Dosage: 30 MG, BID
     Route: 065
     Dates: start: 2016
  5. MOTILIUM [Interacting]
     Active Substance: DOMPERIDONE
     Indication: GASTRIC DISORDER
     Dosage: UNK
     Route: 065
     Dates: start: 2016
  6. TARGIN [Interacting]
     Active Substance: NALOXONE HYDROCHLORIDE\OXYCODONE HYDROCHLORIDE
     Indication: PAIN
     Dosage: UNK
     Route: 065
     Dates: start: 2016

REACTIONS (2)
  - Somnolence [Unknown]
  - Drug interaction [Recovered/Resolved]
